FAERS Safety Report 10570690 (Version 1)
Quarter: 2014Q4

REPORT INFORMATION
  Report Type: Spontaneous
  Country: US (occurrence: None)
  Receive Date: 20141106
  Receipt Date: 20141106
  Transmission Date: 20150529
  Serious: Yes (Hospitalization)
  Sender: FDA-Public Use
  Company Number: None

PATIENT
  Age: 36 Year
  Sex: Female
  Weight: 105 kg

DRUGS (8)
  1. MIRALAX [Concomitant]
     Active Substance: POLYETHYLENE GLYCOL 3350
  2. ACYCLOVIR. [Concomitant]
     Active Substance: ACYCLOVIR
  3. ASPIRIN. [Concomitant]
     Active Substance: ASPIRIN
  4. LENALIDOMIDE [Suspect]
     Active Substance: LENALIDOMIDE
     Dates: end: 20141027
  5. OXYCODONE [Concomitant]
     Active Substance: OXYCODONE
  6. OXYCONTIN [Concomitant]
     Active Substance: OXYCODONE HYDROCHLORIDE
  7. SENNA S [Concomitant]
     Active Substance: DOCUSATE SODIUM\SENNA LEAF
  8. ORTHO TRICYCLICS [Concomitant]

REACTIONS (4)
  - Thrombosis [None]
  - Palpitations [None]
  - Muscle spasms [None]
  - Pulmonary embolism [None]

NARRATIVE: CASE EVENT DATE: 20141028
